FAERS Safety Report 24169017 (Version 4)
Quarter: 2024Q3

REPORT INFORMATION
  Report Type: Spontaneous
  Country: US (occurrence: US)
  Receive Date: 20240802
  Receipt Date: 20240930
  Transmission Date: 20241017
  Serious: No
  Sender: PFIZER
  Company Number: US-PFIZER INC-PV202400100406

PATIENT
  Age: 57 Year
  Sex: Female

DRUGS (2)
  1. IBRANCE [Suspect]
     Active Substance: PALBOCICLIB
     Indication: Breast cancer metastatic
     Dosage: 125 MG
  2. OZEMPIC [Suspect]
     Active Substance: SEMAGLUTIDE

REACTIONS (8)
  - Madarosis [Unknown]
  - Alopecia [Unknown]
  - Diarrhoea [Not Recovered/Not Resolved]
  - Fatigue [Unknown]
  - Neoplasm progression [Unknown]
  - Decreased appetite [Unknown]
  - Intentional dose omission [Unknown]
  - Product dose omission in error [Unknown]
